FAERS Safety Report 21803726 (Version 7)
Quarter: 2024Q2

REPORT INFORMATION
  Report Type: Report from Study
  Country: US (occurrence: US)
  Receive Date: 20230102
  Receipt Date: 20240529
  Transmission Date: 20240715
  Serious: No
  Sender: FDA-Public Use
  Company Number: US-002147023-NVSC2022US301525

PATIENT
  Age: 55 Year
  Sex: Female

DRUGS (2)
  1. KESIMPTA [Suspect]
     Active Substance: OFATUMUMAB
     Indication: Multiple sclerosis
     Dosage: 20 MG, QMO
     Route: 058
     Dates: start: 20221228
  2. KESIMPTA [Suspect]
     Active Substance: OFATUMUMAB
     Indication: Relapsing multiple sclerosis

REACTIONS (8)
  - Gait disturbance [Unknown]
  - Muscle spasms [Not Recovered/Not Resolved]
  - Myalgia [Unknown]
  - Chills [Unknown]
  - Vomiting [Unknown]
  - Nausea [Recovered/Resolved]
  - Dizziness [Recovered/Resolved]
  - Injection site pain [Unknown]

NARRATIVE: CASE EVENT DATE: 20221228
